FAERS Safety Report 12493070 (Version 2)
Quarter: 2016Q3

REPORT INFORMATION
  Report Type: Spontaneous
  Country: CA (occurrence: CA)
  Receive Date: 20160623
  Receipt Date: 20160726
  Transmission Date: 20161109
  Serious: Yes (Other)
  Sender: FDA-Public Use
  Company Number: CA-REGENERON PHARMACEUTICALS, INC.-2016-18518

PATIENT

DRUGS (1)
  1. EYLEA [Suspect]
     Active Substance: AFLIBERCEPT
     Indication: PRODUCT USED FOR UNKNOWN INDICATION
     Dosage: PATIENT RECEIVED FIRST OF THREE LOADING DOSES
     Route: 031
     Dates: start: 20160608

REACTIONS (5)
  - Metamorphopsia [Unknown]
  - Blindness [Unknown]
  - Eye swelling [Unknown]
  - Eye haemorrhage [Unknown]
  - Visual impairment [Unknown]
